FAERS Safety Report 6959812-2 (Version None)
Quarter: 2010Q3

REPORT INFORMATION
  Report Type: 
  Country: None (occurrence: None)
  Receive Date: 20100901
  Receipt Date: 20100824
  Transmission Date: 20110219
  Serious: No
  Sender: FDA-Public Use
  Company Number: US-BIOGENIDEC-2010BI029741

PATIENT
  Sex: Female

DRUGS (2)
  1. TYSABRI [Suspect]
     Indication: MULTIPLE SCLEROSIS
     Route: 042
     Dates: start: 20070713, end: 20090904
  2. TYSABRI [Suspect]
     Route: 042
     Dates: start: 20100505

REACTIONS (2)
  - EYE MOVEMENT DISORDER [None]
  - MULTIPLE SCLEROSIS [None]
